FAERS Safety Report 4749143-3 (Version None)
Quarter: 2005Q3

REPORT INFORMATION
  Report Type: 
  Country: None (occurrence: None)
  Receive Date: 20050819
  Receipt Date: 20050711
  Transmission Date: 20060218
  Serious: Yes (Other)
  Sender: FDA-Public Use
  Company Number: PHNU2005DE02504

PATIENT
  Age: 71 Year
  Sex: Female

DRUGS (6)
  1. TRILEPTAL [Suspect]
     Indication: EPILEPSY
     Dosage: 900 MG, BID
     Dates: start: 20040601
  2. LISINOPRIL [Concomitant]
     Dates: start: 20040601
  3. NIFEDIPINE [Concomitant]
     Dates: start: 20040601
  4. METOPROLOL [Concomitant]
     Dates: start: 20040601
  5. ASPIRIN [Concomitant]
     Dates: start: 20040601
  6. TRAMADOL HCL [Concomitant]

REACTIONS (6)
  - CEREBROVASCULAR ACCIDENT [None]
  - CONVULSION [None]
  - EYE ROLLING [None]
  - MUSCLE SPASMS [None]
  - MUSCULOSKELETAL STIFFNESS [None]
  - SWELLING FACE [None]
